FAERS Safety Report 14985946 (Version 2)
Quarter: 2018Q3

REPORT INFORMATION
  Report Type: Spontaneous
  Country: DE (occurrence: DE)
  Receive Date: 20180607
  Receipt Date: 20180703
  Transmission Date: 20181010
  Serious: Yes (Hospitalization)
  Sender: FDA-Public Use
  Company Number: PHHY2018DE011665

PATIENT
  Sex: Male

DRUGS (5)
  1. TOCILIZUMAB. [Suspect]
     Active Substance: TOCILIZUMAB
     Indication: RHEUMATOID ARTHRITIS
     Dosage: 162 MG, UNK
     Route: 058
  2. METHOTREXAT [Suspect]
     Active Substance: METHOTREXATE
     Indication: RHEUMATOID ARTHRITIS
     Dosage: 10 MG, UNK
     Route: 065
  3. CIMZIA [Suspect]
     Active Substance: CERTOLIZUMAB PEGOL
     Indication: PRODUCT USED FOR UNKNOWN INDICATION
     Dosage: 200 MG, UNK
     Route: 065
  4. METHOTREXAT [Suspect]
     Active Substance: METHOTREXATE
     Dosage: 7.5 MG, UNK
     Route: 065
  5. METHOTREXAT [Suspect]
     Active Substance: METHOTREXATE
     Dosage: 10 MG, UNK
     Route: 065

REACTIONS (2)
  - Bladder cancer [Unknown]
  - Folliculitis [Unknown]
